FAERS Safety Report 25830015 (Version 3)
Quarter: 2025Q4

REPORT INFORMATION
  Report Type: Report from Study
  Country: EU (occurrence: EU)
  Receive Date: 20250922
  Receipt Date: 20251021
  Transmission Date: 20260118
  Serious: Yes (Hospitalization)
  Sender: ABBVIE
  Company Number: EU-ABBVIE-6469501

PATIENT
  Age: 63 Year
  Sex: Female

DRUGS (5)
  1. FOSCARBIDOPA\FOSLEVODOPA [Suspect]
     Active Substance: FOSCARBIDOPA\FOSLEVODOPA
     Indication: Parkinsonism
     Dosage: CRN: 0.25 ML/H, CR: 0.41 ML/H, CRH: 0.43 ML/H, ED:0.10 ML
     Route: 058
     Dates: start: 20250715, end: 20250917
  2. FOSCARBIDOPA\FOSLEVODOPA [Suspect]
     Active Substance: FOSCARBIDOPA\FOSLEVODOPA
     Dosage: DOSE REDUCED
     Route: 058
     Dates: start: 2025
  3. ELIQUIS [Concomitant]
     Active Substance: APIXABAN
     Indication: Parkinson^s disease
  4. FERROUS GLUCONATE [Concomitant]
     Active Substance: FERROUS GLUCONATE
     Indication: Parkinson^s disease
     Route: 048
  5. ALDACTONE [Concomitant]
     Active Substance: SPIRONOLACTONE
     Indication: Parkinson^s disease

REACTIONS (9)
  - Nephrolithiasis [Unknown]
  - Therapeutic product effect variable [Unknown]
  - Device use error [Unknown]
  - Accidental overdose [Unknown]
  - Hyperkinesia [Recovering/Resolving]
  - Hallucination [Recovering/Resolving]
  - Delusion [Unknown]
  - Electric shock sensation [Unknown]
  - Feeling abnormal [Unknown]

NARRATIVE: CASE EVENT DATE: 20250101
